FAERS Safety Report 4350580-X (Version None)
Quarter: 2004Q2

REPORT INFORMATION
  Report Type: 
  Country: None (occurrence: None)
  Receive Date: 20040427
  Receipt Date: 20040415
  Transmission Date: 20050107
  Serious: Yes (Hospitalization)
  Sender: FDA-Public Use
  Company Number: 04P-056-0257737-00

PATIENT
  Age: 38 Year
  Sex: Male

DRUGS (6)
  1. VALPROATE SODIUM [Suspect]
     Indication: EPILEPSY
     Dosage: 3 TABLET, 1 IN 1 D, ORAL
     Route: 048
     Dates: start: 20030924, end: 20040120
  2. ZIDOVUDINE [Concomitant]
  3. ZALCITABINE [Concomitant]
  4. LAMIVUDINE [Concomitant]
  5. GABAPENTIN [Concomitant]
  6. BUPRENORPHINE HYDROCHLORIDE [Concomitant]

REACTIONS (4)
  - ANAEMIA MACROCYTIC [None]
  - APLASIA PURE RED CELL [None]
  - ASTHENIA [None]
  - NEUTROPENIA [None]
